FAERS Safety Report 4761814-1 (Version None)
Quarter: 2005Q3

REPORT INFORMATION
  Report Type: 
  Country: None (occurrence: None)
  Receive Date: 20050906
  Receipt Date: 20050830
  Transmission Date: 20060218
  Serious: Yes (Other)
  Sender: FDA-Public Use
  Company Number: 200516423US

PATIENT
  Age: 43 Year
  Sex: Female

DRUGS (3)
  1. LOVENOX [Suspect]
     Indication: THROMBOSIS
     Route: 051
     Dates: start: 20050601, end: 20050822
  2. FOLIC ACID [Concomitant]
     Dosage: DOSE: UNKNOWN
  3. PRENATAL VITAMINS [Concomitant]
     Dosage: DOSE: UNKNOWN

REACTIONS (13)
  - ABORTION SPONTANEOUS [None]
  - BACK PAIN [None]
  - CONTUSION [None]
  - DRUG EXPOSURE DURING PREGNANCY [None]
  - HAEMORRHAGE [None]
  - INJECTION SITE HAEMORRHAGE [None]
  - INJECTION SITE INDURATION [None]
  - INJECTION SITE PAIN [None]
  - INTRA-UTERINE DEATH [None]
  - PAIN [None]
  - SKIN DISCOLOURATION [None]
  - SWELLING [None]
  - VAGINAL HAEMORRHAGE [None]
